FAERS Safety Report 13875008 (Version 1)
Quarter: 2017Q3

REPORT INFORMATION
  Report Type: Spontaneous
  Country: US (occurrence: US)
  Receive Date: 20170816
  Receipt Date: 20170816
  Transmission Date: 20171127
  Serious: No
  Sender: FDA-Public Use
  Company Number: US-ROCHE-1296824

PATIENT
  Age: 79 Year
  Sex: Female

DRUGS (2)
  1. LUCENTIS [Suspect]
     Active Substance: RANIBIZUMAB
     Route: 065
     Dates: start: 20131009
  2. LUCENTIS [Suspect]
     Active Substance: RANIBIZUMAB
     Indication: RETINAL VEIN OCCLUSION
     Route: 065
     Dates: start: 201302

REACTIONS (2)
  - Injection site pain [Unknown]
  - Macular oedema [Unknown]
